FAERS Safety Report 9376343 (Version 1)
Quarter: 2013Q3

REPORT INFORMATION
  Report Type: Other
  Country: US (occurrence: US)
  Receive Date: 20130701
  Receipt Date: 20130701
  Transmission Date: 20140515
  Serious: Yes (Hospitalization, Other)
  Sender: FDA-Public Use
  Company Number: US-BRISTOL-MYERS SQUIBB COMPANY-19034164

PATIENT
  Age: 15 Year
  Sex: Female

DRUGS (2)
  1. METFORMIN HCL TABS 500MG [Suspect]
     Dosage: 150 TABS OF METFORMIN HCL TABS 500MG -
  2. QUETIAPINE [Suspect]
     Indication: DEPRESSION
     Dosage: 1 DF:30 TABS OF QUETIAPINE 100MG

REACTIONS (4)
  - Lactic acidosis [Recovered/Resolved]
  - Intentional overdose [Recovered/Resolved]
  - Hypoglycaemia [Recovered/Resolved]
  - Hypotension [Recovered/Resolved]
